FAERS Safety Report 13367690 (Version 2)
Quarter: 2017Q2

REPORT INFORMATION
  Report Type: Spontaneous
  Country: IT (occurrence: IT)
  Receive Date: 20170324
  Receipt Date: 20170425
  Transmission Date: 20170830
  Serious: Yes (Other)
  Sender: FDA-Public Use
  Company Number: IT-ROCHE-1909898

PATIENT
  Age: 72 Year
  Sex: Female

DRUGS (1)
  1. LUCENTIS [Suspect]
     Active Substance: RANIBIZUMAB
     Indication: DIABETIC RETINAL OEDEMA
     Dosage: 1 DF, QMO
     Route: 031
     Dates: start: 20170213, end: 20170213

REACTIONS (3)
  - Hemiparesis [Recovered/Resolved]
  - Fall [Unknown]
  - Drop attacks [Recovered/Resolved]

NARRATIVE: CASE EVENT DATE: 20170220
